FAERS Safety Report 8231581-8 (Version None)
Quarter: 2012Q1

REPORT INFORMATION
  Report Type: 
  Country: None (occurrence: None)
  Receive Date: 20120323
  Receipt Date: 20120320
  Transmission Date: 20120608
  Serious: Yes (Other)
  Sender: FDA-Public Use
  Company Number: PHEH2012US006334

PATIENT
  Sex: Female

DRUGS (2)
  1. TEKTURNA [Suspect]
     Dosage: UNK UKN, UNK
  2. VALTURNA [Suspect]
     Dosage: UNK UKN, UNK

REACTIONS (2)
  - RENAL DISORDER [None]
  - CEREBROVASCULAR ACCIDENT [None]
